FAERS Safety Report 5311412-6 (Version None)
Quarter: 2007Q2

REPORT INFORMATION
  Report Type: 
  Country: None (occurrence: None)
  Receive Date: 20070430
  Receipt Date: 20070427
  Transmission Date: 20071010
  Serious: Yes (Hospitalization)
  Sender: FDA-Public Use
  Company Number: ES-BRISTOL-MYERS SQUIBB COMPANY-13762612

PATIENT
  Age: 39 Year
  Sex: Male

DRUGS (5)
  1. REYATAZ [Suspect]
     Indication: HIV INFECTION
     Route: 048
     Dates: start: 20050101, end: 20060719
  2. TRUVADA [Suspect]
     Indication: HIV INFECTION
     Route: 048
     Dates: start: 20050101, end: 20060719
  3. NORVIR [Suspect]
     Indication: HIV INFECTION
     Route: 048
     Dates: start: 20050101, end: 20060719
  4. XELODA [Suspect]
     Indication: POLYP
     Dosage: 01-JUN-2006 TO 10-JUL-2006 1.5 G DAILY THEN 10-JUL-2006 TO 19-JUL-2006 300 MG DAILY.
     Route: 048
     Dates: start: 20060601, end: 20060719
  5. ALPRAZOLAM [Concomitant]
     Indication: ANXIETY
     Route: 048
     Dates: start: 20050101

REACTIONS (1)
  - HEPATITIS [None]
